FAERS Safety Report 25668791 (Version 2)
Quarter: 2025Q3

REPORT INFORMATION
  Report Type: Report from Study
  Country: US (occurrence: US)
  Receive Date: 20250812
  Receipt Date: 20250908
  Transmission Date: 20251020
  Serious: No
  Sender: SUNOVION
  Company Number: US-SUMITOMO PHARMA SWITZERLAND GMBH-2025SPA008373

PATIENT
  Age: 74 Year
  Sex: Male

DRUGS (9)
  1. ORGOVYX [Suspect]
     Active Substance: RELUGOLIX
     Indication: Prostate cancer
     Route: 048
  2. XTANDI [Suspect]
     Active Substance: ENZALUTAMIDE
     Indication: Product used for unknown indication
  3. TRAMADOL [Concomitant]
     Active Substance: TRAMADOL
  4. TAMSULOSIN [Concomitant]
     Active Substance: TAMSULOSIN
  5. CYCLOBENZAPRINE [Concomitant]
     Active Substance: CYCLOBENZAPRINE
  6. LIDOCAINE [Concomitant]
     Active Substance: LIDOCAINE
     Route: 062
  7. BACTRIM DS [Concomitant]
     Active Substance: SULFAMETHOXAZOLE\TRIMETHOPRIM
  8. AZELASTINE [Concomitant]
     Active Substance: AZELASTINE
  9. FLUCONAZOLE [Concomitant]
     Active Substance: FLUCONAZOLE

REACTIONS (8)
  - Dyspnoea [Unknown]
  - Throat tightness [Unknown]
  - Sinusitis [Unknown]
  - Dysgeusia [Unknown]
  - Urinary tract infection [Unknown]
  - Fatigue [Unknown]
  - Hot flush [Unknown]
  - Incorrect dose administered [Recovered/Resolved]
